FAERS Safety Report 9232313 (Version 2)
Quarter: 2013Q2

REPORT INFORMATION
  Report Type: Spontaneous
  Country: BR (occurrence: BR)
  Receive Date: 20130416
  Receipt Date: 20130509
  Transmission Date: 20140414
  Serious: Yes (Life-Threatening, Hospitalization)
  Sender: FDA-Public Use
  Company Number: BR-BRISTOL-MYERS SQUIBB COMPANY-18759282

PATIENT
  Age: 69 Year
  Sex: Female
  Weight: 68 kg

DRUGS (13)
  1. APROVEL TABS 300 MG [Suspect]
     Indication: BLOOD PRESSURE MANAGEMENT
     Route: 048
  2. GLIFAGE [Suspect]
     Indication: DIABETES MELLITUS
     Dosage: 1DF:3TABLETS?START DATE:10YRS AGO.
     Route: 048
  3. CARVEDILOL [Concomitant]
     Indication: BLOOD PRESSURE
     Dosage: 2TABLETS
     Route: 048
     Dates: start: 2009
  4. REGULAR INSULIN [Concomitant]
     Indication: DIABETES MELLITUS
     Dosage: ROUTE: ON BELLY?STARTED DATE: 3YEARS AGO.
  5. NPH INSULIN [Concomitant]
     Indication: DIABETES MELLITUS
     Dosage: 34IU IN THE MORNING MIXED WITH 8IU OF REGULAR INSULIN AND 20IU MIXED WITH 6IU OF REGULAR INSULIN.
  6. COLLYRIUM [Concomitant]
     Indication: GLAUCOMA
     Dosage: START DATE: 3YRS AGO.
     Route: 047
  7. LYRICA [Concomitant]
     Indication: PAIN
     Dosage: 1DF:2TABS?STARTED DATE:3YRS AGO.
     Route: 048
  8. RIVOTRIL [Concomitant]
     Indication: ANXIETY
     Dosage: 1DF:1TABLET?STARTED DATE: 3YRS AGO.
     Route: 048
  9. SIMVASTATIN [Concomitant]
     Indication: BLOOD CHOLESTEROL
     Dosage: 1DF:1 TABLET?START DATE: 10YRS AGO.
     Route: 048
  10. CLOPIDOGREL BISULFATE [Concomitant]
     Indication: VASODILATION PROCEDURE
     Dosage: 1DF:1TABLET
     Route: 048
     Dates: start: 200603
  11. AAS [Concomitant]
     Indication: PROTHROMBIN LEVEL DECREASED
     Dosage: 1DF:2TABS?STARTED DATE:10YRS AGO.
     Route: 048
  12. SUSTRATE TABS [Concomitant]
     Indication: ANGINA PECTORIS
     Dosage: 1DF:2TABS
     Route: 048
     Dates: start: 201208
  13. NATRILIX [Concomitant]
     Indication: URINARY RETENTION
     Dosage: 1DF:1TABLET.
     Route: 048
     Dates: start: 200504

REACTIONS (9)
  - Infarction [Recovering/Resolving]
  - Angina pectoris [Recovering/Resolving]
  - Vein disorder [Recovering/Resolving]
  - Convulsion [Recovering/Resolving]
  - Vomiting [Recovering/Resolving]
  - Chills [Recovering/Resolving]
  - Pyrexia [Recovering/Resolving]
  - Myalgia [Recovering/Resolving]
  - Tendon pain [Recovering/Resolving]
